FAERS Safety Report 13074086 (Version 2)
Quarter: 2024Q4

REPORT INFORMATION
  Report Type: Spontaneous
  Country: FR (occurrence: FR)
  Receive Date: 20161229
  Receipt Date: 20241207
  Transmission Date: 20250114
  Serious: Yes (Hospitalization, Disabling, Other)
  Sender: MACLEODS
  Company Number: None

PATIENT

DRUGS (13)
  1. LEVOFLOXACIN [Suspect]
     Active Substance: LEVOFLOXACIN
     Indication: Antibiotic therapy
     Dosage: 250 MG, QD
     Route: 048
  2. LEVOFLOXACIN [Suspect]
     Active Substance: LEVOFLOXACIN
     Indication: Staphylococcal infection
  3. LEVOFLOXACIN [Suspect]
     Active Substance: LEVOFLOXACIN
     Indication: Skin necrosis
  4. ROSUVASTATIN [Suspect]
     Active Substance: ROSUVASTATIN
     Indication: Product used for unknown indication
     Dosage: UNK
     Route: 065
  5. PREDNISONE [Suspect]
     Active Substance: PREDNISONE
     Indication: Arthralgia
     Dosage: UNK
     Route: 065
  6. PREDNISONE [Suspect]
     Active Substance: PREDNISONE
     Indication: Polyarthritis
  7. BISOPROLOL [Concomitant]
     Active Substance: BISOPROLOL
     Indication: Product used for unknown indication
     Dosage: UNK
     Route: 065
  8. WARFARIN SODIUM [Concomitant]
     Active Substance: WARFARIN SODIUM
     Indication: Product used for unknown indication
     Dosage: UNK
     Route: 065
  9. FUROSEMIDE [Concomitant]
     Active Substance: FUROSEMIDE
     Indication: Product used for unknown indication
     Dosage: UNK
     Route: 065
  10. OXACILLIN [Concomitant]
     Active Substance: OXACILLIN SODIUM
     Indication: Antibiotic therapy
     Dosage: 8 MG, QD
     Route: 042
  11. OXACILLIN [Concomitant]
     Active Substance: OXACILLIN SODIUM
     Indication: Wound infection staphylococcal
  12. OXACILLIN [Concomitant]
     Active Substance: OXACILLIN SODIUM
     Indication: Skin necrosis
  13. ACETAMINOPHEN [Concomitant]
     Active Substance: ACETAMINOPHEN
     Indication: Product used for unknown indication
     Route: 065

REACTIONS (8)
  - Rotator cuff syndrome [Recovered/Resolved with Sequelae]
  - Joint microhaemorrhage [Unknown]
  - Joint dislocation [Recovered/Resolved with Sequelae]
  - Ecchymosis [Recovering/Resolving]
  - Tendon disorder [Not Recovered/Not Resolved]
  - Haemarthrosis [Recovered/Resolved with Sequelae]
  - Joint effusion [Recovered/Resolved]
  - Drug interaction [Unknown]
